FAERS Safety Report 10706301 (Version 1)
Quarter: 2014Q4

REPORT INFORMATION
  Report Type: Spontaneous
  Country: US (occurrence: None)
  Receive Date: 20141224
  Receipt Date: 20141224
  Transmission Date: 20150529
  Serious: Yes (Hospitalization, Other)
  Sender: FDA-Public Use
  Company Number: PHEH2014US014884

PATIENT
  Age: 65 Year
  Sex: Female

DRUGS (4)
  1. AFINITOR [Suspect]
     Active Substance: EVEROLIMUS
     Indication: BREAST CANCER
     Route: 048
     Dates: start: 20131224
  2. LOSARTAN [Concomitant]
     Active Substance: LOSARTAN
  3. EXEMESTANE. [Concomitant]
     Active Substance: EXEMESTANE
  4. METFORMIN [Concomitant]
     Active Substance: METFORMIN HYDROCHLORIDE

REACTIONS (4)
  - Dyspnoea [None]
  - Fatigue [None]
  - Pneumonitis [None]
  - Cough [None]

NARRATIVE: CASE EVENT DATE: 20140612
